FAERS Safety Report 9292131 (Version 1)
Quarter: 2020Q3

REPORT INFORMATION
  Report Type: Report from Study
  Country: US (occurrence: US)
  Receive Date: 20130516
  Receipt Date: 20130516
  Transmission Date: 20201104
  Serious: Yes (Other)
  Sender: FDA-Public Use
  Company Number: US-CELGENEUS-163-21880-13051406

PATIENT
  Age: 66 Year
  Sex: Female
  Weight: 70.9 kg

DRUGS (5)
  1. REVLIMID [Suspect]
     Active Substance: LENALIDOMIDE
     Route: 048
     Dates: start: 20130410, end: 20130423
  2. CEDIRANIB. [Suspect]
     Active Substance: CEDIRANIB
     Route: 048
     Dates: start: 20130410, end: 20130424
  3. REVLIMID [Suspect]
     Active Substance: LENALIDOMIDE
     Indication: PAPILLARY THYROID CANCER
     Dosage: 15 MILLIGRAM
     Route: 048
     Dates: start: 20130109
  4. CEDIRANIB. [Suspect]
     Active Substance: CEDIRANIB
     Indication: PAPILLARY THYROID CANCER
     Dosage: 30 MILLIGRAM
     Route: 048
     Dates: start: 20130109
  5. PRINIVIL [Concomitant]
     Active Substance: LISINOPRIL
     Indication: PRODUCT USED FOR UNKNOWN INDICATION
     Route: 065

REACTIONS (2)
  - Proteinuria [Not Recovered/Not Resolved]
  - Hypothyroidism [Not Recovered/Not Resolved]

NARRATIVE: CASE EVENT DATE: 20130426
